FAERS Safety Report 6266634-7 (Version None)
Quarter: 2009Q3

REPORT INFORMATION
  Report Type: 
  Country: None (occurrence: None)
  Receive Date: 20090710
  Receipt Date: 20090630
  Transmission Date: 20100115
  Serious: Yes (Hospitalization)
  Sender: FDA-Public Use
  Company Number: 2009PV038534

PATIENT
  Age: 61 Year
  Sex: Male

DRUGS (9)
  1. SYMLIN [Suspect]
     Indication: TYPE 2 DIABETES MELLITUS
     Dosage: 120 MCG; TID; SC
     Route: 058
  2. NOVOLOG [Concomitant]
  3. LANTUS [Concomitant]
  4. DIGOXIN [Concomitant]
  5. POTASSIUM CHLORIDE [Concomitant]
  6. LASIX [Concomitant]
  7. IMDUR [Concomitant]
  8. COZAAR [Concomitant]
  9. COREG [Concomitant]

REACTIONS (1)
  - DEVICE MALFUNCTION [None]
